FAERS Safety Report 14942790 (Version 2)
Quarter: 2018Q3

REPORT INFORMATION
  Report Type: Spontaneous
  Country: JP (occurrence: JP)
  Receive Date: 20180528
  Receipt Date: 20180823
  Transmission Date: 20181010
  Serious: Yes (Other)
  Sender: FDA-Public Use
  Company Number: JP-REGENERON PHARMACEUTICALS, INC.-2018-24499

PATIENT

DRUGS (8)
  1. EYLEA [Suspect]
     Active Substance: AFLIBERCEPT
     Dosage: RIGHT EYE DAILY DOSE 2 MG
     Route: 031
     Dates: start: 20150325, end: 20150325
  2. EYLEA [Suspect]
     Active Substance: AFLIBERCEPT
     Dosage: RIGHT EYE DAILY DOSE 2 MG
     Route: 031
     Dates: start: 20150708, end: 20150708
  3. EYLEA [Suspect]
     Active Substance: AFLIBERCEPT
     Indication: AGE-RELATED MACULAR DEGENERATION
     Dosage: RIGHT EYE DAILY DOSE 2 MG
     Route: 031
     Dates: start: 20141118, end: 20141118
  4. EYLEA [Suspect]
     Active Substance: AFLIBERCEPT
     Dosage: RIGHT EYE DAILY DOSE 2 MG
     Route: 031
     Dates: start: 20150520, end: 20150520
  5. EYLEA [Suspect]
     Active Substance: AFLIBERCEPT
     Dosage: RIGHT EYE DAILY DOSE 2 MG
     Route: 031
     Dates: start: 20151021, end: 20151021
  6. EYLEA [Suspect]
     Active Substance: AFLIBERCEPT
     Dosage: RIGHT EYE DAILY DOSE 2 MG
     Route: 031
     Dates: start: 20141225, end: 20141225
  7. EYLEA [Suspect]
     Active Substance: AFLIBERCEPT
     Dosage: RIGHT EYE DAILY DOSE 2 MG
     Route: 031
     Dates: start: 20150218, end: 20150218
  8. EYLEA [Suspect]
     Active Substance: AFLIBERCEPT
     Dosage: RIGHT EYE DAILY DOSE 2 MG
     Route: 031
     Dates: start: 20150826, end: 20150826

REACTIONS (3)
  - Retinal pigment epitheliopathy [Unknown]
  - Cerebral infarction [Recovered/Resolved]
  - Subretinal fluid [Unknown]

NARRATIVE: CASE EVENT DATE: 20160702
